FAERS Safety Report 7911864-9 (Version None)
Quarter: 2011Q4

REPORT INFORMATION
  Report Type: 
  Country: None (occurrence: None)
  Receive Date: 20111114
  Receipt Date: 20111109
  Transmission Date: 20120403
  Serious: Yes (Disabling, Other)
  Sender: FDA-Public Use
  Company Number: JP-B.I. PHARMACEUTICALS,INC./RIDGEFIELD-2011-BP-13590NB

PATIENT
  Sex: Male
  Weight: 50.8 kg

DRUGS (6)
  1. PRADAXA [Suspect]
     Indication: ATRIAL FIBRILLATION
     Dosage: 300 MG
     Route: 048
     Dates: start: 20110425, end: 20110510
  2. MOHRUS TAPE L [Concomitant]
     Dosage: 40 MG
     Route: 062
     Dates: start: 20100415
  3. SUNRYTHM [Concomitant]
     Indication: ATRIAL FIBRILLATION
     Dosage: 750 MG
     Route: 048
     Dates: start: 20110405, end: 20110510
  4. LOSARTAN POTASSIUM [Concomitant]
     Indication: HYPERTENSION
     Dosage: 100 MG
     Route: 048
     Dates: start: 20100415
  5. MARZULENE-S [Concomitant]
     Dosage: 1 G
     Route: 048
     Dates: start: 20100415
  6. DIAZEPAM [Concomitant]
     Dosage: 2 MG
     Route: 048
     Dates: start: 20110405, end: 20110510

REACTIONS (4)
  - HAEMATURIA [None]
  - OEDEMA PERIPHERAL [None]
  - WEIGHT INCREASED [None]
  - FACE OEDEMA [None]
